FAERS Safety Report 14178675 (Version 3)
Quarter: 2017Q4

REPORT INFORMATION
  Report Type: Spontaneous
  Country: MA (occurrence: MA)
  Receive Date: 20171110
  Receipt Date: 20171207
  Transmission Date: 20180321
  Serious: Yes (Other)
  Sender: FDA-Public Use
  Company Number: MA-SUN PHARMACEUTICAL INDUSTRIES LTD-2017RR-154430

PATIENT
  Age: 64 Year
  Weight: 70 kg

DRUGS (3)
  1. 5-FLUOROURACIL [Suspect]
     Active Substance: FLUOROURACIL
     Indication: COLON CANCER METASTATIC
     Dosage: 3 CURES FOLFIRI-BEVACIZUMAB
     Route: 065
  2. BEVACIZUMAB. [Suspect]
     Active Substance: BEVACIZUMAB
     Indication: COLON CANCER METASTATIC
     Dosage: 3 CURES FOLFIRI-BEVACIZUMAB
     Route: 065
  3. IRINOTECAN [Suspect]
     Active Substance: IRINOTECAN
     Indication: COLON CANCER METASTATIC
     Dosage: 3 CURES FOLFIRI-BEVACIZUMAB
     Route: 065

REACTIONS (2)
  - Nail pigmentation [Unknown]
  - Neuropathy peripheral [Unknown]
